FAERS Safety Report 4582228-3 (Version None)
Quarter: 2005Q1

REPORT INFORMATION
  Report Type: 
  Country: None (occurrence: None)
  Receive Date: 20050214
  Receipt Date: 20050131
  Transmission Date: 20050727
  Serious: Yes (Hospitalization)
  Sender: FDA-Public Use
  Company Number: GXKR2005ES00544

PATIENT
  Age: 4 Year
  Sex: Female

DRUGS (1)
  1. IBUPROFEN [Suspect]
     Indication: PYREXIA
     Dosage: ORAL
     Route: 048

REACTIONS (9)
  - JOINT RANGE OF MOTION DECREASED [None]
  - NECROTISING FASCIITIS [None]
  - PAIN [None]
  - PYREXIA [None]
  - SKIN LESION [None]
  - STAPHYLOCOCCAL INFECTION [None]
  - SUBCUTANEOUS ABSCESS [None]
  - SUPERINFECTION [None]
  - THERAPEUTIC RESPONSE DECREASED [None]
